FAERS Safety Report 14123234 (Version 1)
Quarter: 2017Q4

REPORT INFORMATION
  Report Type: Spontaneous
  Country: US (occurrence: None)
  Receive Date: 20171024
  Receipt Date: 20171024
  Transmission Date: 20180321
  Serious: Yes (Hospitalization)
  Sender: FDA-Public Use
  Company Number: None

PATIENT
  Age: 69 Year
  Sex: Male
  Weight: 63.5 kg

DRUGS (1)
  1. ATENOLOL. [Suspect]
     Active Substance: ATENOLOL
     Indication: HYPERTENSION
     Dosage: 75 MG AM PO
     Route: 048
     Dates: start: 20170322, end: 20170619

REACTIONS (10)
  - Bradycardia [None]
  - Asthenia [None]
  - Malaise [None]
  - Palpitations [None]
  - Dyspnoea [None]
  - Loss of consciousness [None]
  - Atrial fibrillation [None]
  - Syncope [None]
  - Hypophagia [None]
  - Incorrect dose administered [None]

NARRATIVE: CASE EVENT DATE: 20170619
